FAERS Safety Report 6542229-2 (Version None)
Quarter: 2010Q1

REPORT INFORMATION
  Report Type: 
  Country: None (occurrence: None)
  Receive Date: 20100119
  Receipt Date: 20100115
  Transmission Date: 20100710
  Serious: Yes (Life-Threatening)
  Sender: FDA-Public Use
  Company Number: B0619774A

PATIENT
  Sex: Female
  Weight: 60 kg

DRUGS (2)
  1. SERETIDE [Suspect]
     Indication: ASTHMA
     Route: 055
  2. NASONEX [Concomitant]
     Dosage: 1SPR IN THE MORNING
     Route: 045

REACTIONS (4)
  - LIP SWELLING [None]
  - PRODUCT QUALITY ISSUE [None]
  - RASH GENERALISED [None]
  - SWOLLEN TONGUE [None]
